FAERS Safety Report 8472472-7 (Version None)
Quarter: 2012Q2

REPORT INFORMATION
  Report Type: 
  Country: None (occurrence: None)
  Receive Date: 20120627
  Receipt Date: 20111028
  Transmission Date: 20120825
  Serious: Yes (Other)
  Sender: FDA-Public Use
  Company Number: US-AMGEN-USASP2011045963

PATIENT
  Age: 42 Year
  Sex: Male
  Weight: 130.16 kg

DRUGS (9)
  1. EPOGEN [Suspect]
     Indication: DIALYSIS
     Dosage: 18700 IU, 3 TIMES/WK
     Dates: start: 20110905
  2. COREG [Concomitant]
  3. OMEPRAZOLE [Concomitant]
  4. LISINOPRIL [Concomitant]
  5. EPOGEN [Suspect]
     Dosage: 8800 IU, 3 TIMES/WK
     Dates: start: 20060901
  6. AMLODIPINE [Concomitant]
  7. DILTIAZEM HYDROCHOLORIDE [Concomitant]
  8. LIPITOR [Concomitant]
  9. PHOSLO [Concomitant]

REACTIONS (1)
  - APLASIA PURE RED CELL [None]
